APPROVED DRUG PRODUCT: URSODIOL
Active Ingredient: URSODIOL
Strength: 400MG
Dosage Form/Route: CAPSULE;ORAL
Application: A205789 | Product #002
Applicant: LGM PHARMA SOLUTIONS LLC
Approved: May 8, 2020 | RLD: No | RS: Yes | Type: RX